FAERS Safety Report 7079699 (Version 3)
Quarter: 2020Q2

REPORT INFORMATION
  Report Type: Spontaneous
  Country: GB (occurrence: GB)
  Receive Date: 20090812
  Receipt Date: 20200622
  Transmission Date: 20200714
  Serious: Yes (Life-Threatening, Hospitalization, Other)
  Sender: FDA-Public Use
  Company Number: GB-PFIZER INC-2009251705

PATIENT
  Age: 74 Year
  Sex: Male

DRUGS (13)
  1. FUROSEMIDE. [Concomitant]
     Active Substance: FUROSEMIDE
     Dosage: 40 MG, 2X/DAY
     Route: 048
  2. SPIRONOLACTONE. [Concomitant]
     Active Substance: SPIRONOLACTONE
     Dosage: 25 MG, 1X/DAY
     Route: 048
  3. ATORVASTATIN CALCIUM. [Interacting]
     Active Substance: ATORVASTATIN CALCIUM
     Indication: HYPERTENSION
     Dosage: 20 MG, 1X/DAY
  4. BISOPROLOL [Concomitant]
     Active Substance: BISOPROLOL
     Dosage: 5 MG, 1X/DAY
     Route: 048
  5. INSULIN [Concomitant]
     Active Substance: INSULIN NOS
     Dosage: UNK
     Route: 058
  6. ERYTHROPOIETIN [Concomitant]
     Active Substance: ERYTHROPOIETIN
     Dosage: 6000 IU, WEEKLY
     Route: 058
  7. ACETYLSALICYLIC ACID [Concomitant]
     Active Substance: ASPIRIN
     Dosage: 75 MG, 1X/DAY
     Route: 048
  8. FUSIDIC ACID [Interacting]
     Active Substance: FUSIDIC ACID
     Dosage: 500 MG, 3X/DAY
     Route: 048
  9. CLOPIDOGREL [Concomitant]
     Active Substance: CLOPIDOGREL BISULFATE
     Dosage: 75 MG, 1X/DAY
     Route: 048
  10. ATORVASTATIN CALCIUM. [Suspect]
     Active Substance: ATORVASTATIN CALCIUM
     Indication: HYPERCHOLESTEROLAEMIA
     Dosage: 40 MG, 1X/DAY
     Route: 048
  11. FLUCLOXACILLIN [Interacting]
     Active Substance: FLUCLOXACILLIN
     Dosage: 500 MG, 4X/DAY
     Route: 048
  12. AMLODIPINE [Concomitant]
     Active Substance: AMLODIPINE BESYLATE
     Dosage: 5 MG, 1X/DAY
     Route: 048
  13. LANSOPRAZOLE. [Concomitant]
     Active Substance: LANSOPRAZOLE
     Dosage: 30 MG, 1X/DAY
     Route: 048

REACTIONS (2)
  - Drug interaction [Unknown]
  - Rhabdomyolysis [Recovered/Resolved]
